FAERS Safety Report 7623661-2 (Version None)
Quarter: 2011Q3

REPORT INFORMATION
  Report Type: 
  Country: None (occurrence: None)
  Receive Date: 20110720
  Receipt Date: 20110511
  Transmission Date: 20111222
  Serious: Yes (Hospitalization)
  Sender: FDA-Public Use
  Company Number: ZA-GILEAD-2011-0039147

PATIENT
  Sex: Female

DRUGS (2)
  1. TRUVADA [Suspect]
     Indication: HIV INFECTION
     Dates: start: 20100505
  2. IBUPROFEN [Concomitant]
     Route: 048
     Dates: start: 20110415, end: 20110508

REACTIONS (1)
  - FOREARM FRACTURE [None]
